FAERS Safety Report 25333233 (Version 3)
Quarter: 2025Q2

REPORT INFORMATION
  Report Type: Spontaneous
  Country: JP (occurrence: JP)
  Receive Date: 20250519
  Receipt Date: 20250624
  Transmission Date: 20250717
  Serious: Yes (Hospitalization, Other)
  Sender: ABBVIE
  Company Number: JP-GSKJP-JP2025044803

PATIENT
  Age: 70 Year
  Sex: Female

DRUGS (10)
  1. BOTOX [Suspect]
     Active Substance: ONABOTULINUMTOXINA
     Indication: Muscle spasms
     Route: 065
     Dates: start: 202409, end: 202409
  2. DANTROLENE [Concomitant]
     Active Substance: DANTROLENE
     Indication: Product used for unknown indication
     Dosage: 25 MG, TID
     Dates: end: 20241024
  3. LAMISIL [Concomitant]
     Active Substance: TERBINAFINE HYDROCHLORIDE
     Indication: Product used for unknown indication
     Dosage: 125 MG, QD
     Dates: start: 20240711, end: 20241030
  4. EPERISONE [Concomitant]
     Active Substance: EPERISONE
     Indication: Product used for unknown indication
     Dosage: 50 MG, TID
     Dates: end: 20241024
  5. XEOMIN [Concomitant]
     Active Substance: INCOBOTULINUMTOXINA
     Indication: Muscle spasms
     Dates: start: 20231115
  6. XEOMIN [Concomitant]
     Active Substance: INCOBOTULINUMTOXINA
     Indication: Muscle spasms
     Dates: start: 20240228
  7. LANSOPRAZOLE [Concomitant]
     Active Substance: LANSOPRAZOLE
     Indication: Muscle spasms
     Dates: start: 20240228
  8. LANSOPRAZOLE [Concomitant]
     Active Substance: LANSOPRAZOLE
     Indication: Muscle spasms
     Dates: start: 20230804
  9. PREDNISOLONE [Concomitant]
     Active Substance: PREDNISOLONE
     Indication: Product used for unknown indication
     Dates: end: 20250211
  10. PREDNISOLONE [Concomitant]
     Active Substance: PREDNISOLONE
     Indication: Product used for unknown indication
     Dates: start: 20241120

REACTIONS (4)
  - Upper limb fracture [Not Recovered/Not Resolved]
  - Osteoporosis [Unknown]
  - Comminuted fracture [Unknown]
  - Muscle tightness [Unknown]

NARRATIVE: CASE EVENT DATE: 20250208
